FAERS Safety Report 9660992 (Version 2)
Quarter: 2014Q1

REPORT INFORMATION
  Report Type: Spontaneous
  Country: US (occurrence: US)
  Receive Date: 20131031
  Receipt Date: 20140311
  Transmission Date: 20141002
  Serious: No
  Sender: FDA-Public Use
  Company Number: US-009507513-1310USA015142

PATIENT
  Sex: Female

DRUGS (4)
  1. ISENTRESS [Suspect]
     Route: 048
  2. PREZISTA [Suspect]
     Route: 048
  3. INTELENCE [Suspect]
     Route: 048
  4. NORVIR [Suspect]
     Route: 048

REACTIONS (1)
  - Exposure during pregnancy [Recovered/Resolved]
